FAERS Safety Report 7604268-X (Version None)
Quarter: 2011Q3

REPORT INFORMATION
  Report Type: 
  Country: None (occurrence: None)
  Receive Date: 20110712
  Receipt Date: 20110630
  Transmission Date: 20111222
  Serious: Yes (Death, Hospitalization)
  Sender: FDA-Public Use
  Company Number: LB-AMGEN-LBNSP2011026415

PATIENT
  Age: 62 Year
  Sex: Female

DRUGS (5)
  1. CYTARABINE [Concomitant]
     Dosage: UNK
  2. NEULASTIM [Suspect]
     Indication: NON-HODGKIN'S LYMPHOMA
     Dosage: UNK
     Route: 065
  3. ETOPOSIDE [Concomitant]
     Dosage: UNK
  4. METHYLPREDNISOLONE [Concomitant]
     Dosage: UNK
  5. CISPLATIN [Concomitant]
     Dosage: UNK

REACTIONS (2)
  - DRUG INEFFECTIVE [None]
  - SEPSIS [None]
